FAERS Safety Report 18810187 (Version 1)
Quarter: 2021Q1

REPORT INFORMATION
  Report Type: Spontaneous
  Country: US (occurrence: US)
  Receive Date: 20210129
  Receipt Date: 20210129
  Transmission Date: 20210419
  Serious: Yes (Other)
  Sender: FDA-Public Use
  Company Number: US-BAYER-2021-041956

PATIENT
  Age: 52 Year
  Sex: Female

DRUGS (1)
  1. CIPRO [Suspect]
     Active Substance: CIPROFLOXACIN HYDROCHLORIDE
     Indication: INFECTION
     Dosage: UNK

REACTIONS (2)
  - Substance-induced psychotic disorder [Recovered/Resolved]
  - Affect lability [Recovered/Resolved]
